FAERS Safety Report 5252599-3 (Version None)
Quarter: 2007Q1

REPORT INFORMATION
  Report Type: 
  Country: None (occurrence: None)
  Receive Date: 20070301
  Receipt Date: 20070223
  Transmission Date: 20070707
  Serious: Yes (Other)
  Sender: FDA-Public Use
  Company Number: GB-JNJFOC-20070205937

PATIENT
  Sex: Female
  Weight: 78 kg

DRUGS (7)
  1. REMICADE [Suspect]
     Indication: RHEUMATOID ARTHRITIS
     Route: 042
  2. SULFASALAZINE [Concomitant]
     Route: 065
  3. PREDNISOLONE [Concomitant]
     Route: 065
  4. CO-PROXAMOL [Concomitant]
     Route: 065
  5. HYDROXYCHLOROQUINE SULFATE [Concomitant]
     Route: 065
  6. NAPROXEN [Concomitant]
     Route: 065
  7. RISEDRONATE SODIUM [Concomitant]
     Route: 065

REACTIONS (1)
  - LUNG NEOPLASM MALIGNANT [None]
